FAERS Safety Report 13632996 (Version 1)
Quarter: 2017Q2

REPORT INFORMATION
  Report Type: Spontaneous
  Country: US (occurrence: US)
  Receive Date: 20170609
  Receipt Date: 20170609
  Transmission Date: 20170830
  Serious: No
  Sender: FDA-Public Use
  Company Number: US-SA-2016SA082808

PATIENT
  Sex: Male
  Weight: 130 kg

DRUGS (20)
  1. GLIPIZIDE. [Concomitant]
     Active Substance: GLIPIZIDE
     Indication: TYPE 2 DIABETES MELLITUS
     Dosage: TAKING SINCE HE WAS 45 YEAR OLD
  2. NOVOLIN R [Concomitant]
     Active Substance: INSULIN HUMAN
     Indication: TYPE 2 DIABETES MELLITUS
     Dosage: TAKING SINCE 3-4 YEARS DOSE:21 UNIT(S)
  3. CHLORTALIDONE [Concomitant]
     Active Substance: CHLORTHALIDONE
     Indication: HYPERTENSION
     Dosage: TAKING SINCE 3-4 YEAR AGO
  4. ASPIRIN. [Concomitant]
     Active Substance: ASPIRIN
     Indication: MYOCARDIAL INFARCTION
     Dosage: TAKING SINCE HE WAS 44 YEAR OLD
  5. ATORVASTATIN [Concomitant]
     Active Substance: ATORVASTATIN
     Indication: BLOOD CHOLESTEROL
     Dosage: TAKING SINCE 3-4 YEARS
  6. WARFARIN [Concomitant]
     Active Substance: WARFARIN
     Indication: HEART VALVE OPERATION
     Dosage: 10 MG TABLET EXCEPT THURSDAY; 15MG TABLET ON THURSDAY
     Dates: start: 2010
  7. AMLODIPINE [Concomitant]
     Active Substance: AMLODIPINE BESYLATE
     Indication: HYPERTENSION
     Dosage: TAKING SINCE 3-4 YEARS
  8. CALCIUM/ZINC/MAGNESIUM [Concomitant]
     Indication: BONE DISORDER
     Dosage: THREE TABLETS ONCE DAILY?TAKING SINCE ABOUT 5 YEARS
  9. CLONAZEPAM. [Concomitant]
     Active Substance: CLONAZEPAM
     Indication: SLEEP DISORDER
     Dosage: TAKINH SINCE 6-7 YEARS
  10. FAMOTIDINE. [Concomitant]
     Active Substance: FAMOTIDINE
     Indication: GASTROOESOPHAGEAL REFLUX DISEASE
     Dosage: TAKING SINCE 2-3 YEARS
  11. WARFARIN [Concomitant]
     Active Substance: WARFARIN
     Indication: HEART VALVE OPERATION
     Dosage: 10 MG TABLET EXCEPT THURSDAY; 15MG TABLET ON THURSDAY
     Dates: start: 2010
  12. VIAGRA [Concomitant]
     Active Substance: SILDENAFIL CITRATE
     Indication: ERECTILE DYSFUNCTION
  13. CARVEDILOL. [Concomitant]
     Active Substance: CARVEDILOL
     Indication: HYPERTENSION
     Dosage: TAKING SINCE 6-7 YEARS
  14. LISINOPRIL. [Concomitant]
     Active Substance: LISINOPRIL
     Indication: HYPERTENSION
     Dosage: TAKING SINCE 3-4 YEARS
  15. OMEPRAZOLE. [Concomitant]
     Active Substance: OMEPRAZOLE
     Indication: GASTROOESOPHAGEAL REFLUX DISEASE
     Dates: start: 20160413
  16. FUROSEMIDE. [Concomitant]
     Active Substance: FUROSEMIDE
     Dosage: FOR ABOUT 4 MONTHS
  17. METFORMIN [Concomitant]
     Active Substance: METFORMIN HYDROCHLORIDE
  18. LANTUS [Suspect]
     Active Substance: INSULIN GLARGINE
     Indication: TYPE 2 DIABETES MELLITUS
     Dosage: DOSE:45 UNIT(S)
     Route: 065
  19. CARVEDILOL. [Concomitant]
     Active Substance: CARVEDILOL
     Indication: RENAL DISORDER
     Dosage: TAKING SINCE 6-7 YEARS
  20. FAMOTIDINE. [Concomitant]
     Active Substance: FAMOTIDINE
     Indication: DYSPEPSIA
     Dosage: TAKING SINCE 2-3 YEARS

REACTIONS (2)
  - Muscle spasms [Unknown]
  - Product use issue [Unknown]
